FAERS Safety Report 4778312-1 (Version None)
Quarter: 2005Q3

REPORT INFORMATION
  Report Type: 
  Country: None (occurrence: None)
  Receive Date: 20050926
  Receipt Date: 20050215
  Transmission Date: 20060218
  Serious: Yes (Other)
  Sender: FDA-Public Use
  Company Number: US-BRISTOL-MYERS SQUIBB COMPANY-12868568

PATIENT
  Age: 30 Year
  Sex: Male

DRUGS (9)
  1. STADOL [Suspect]
     Indication: MIGRAINE
     Route: 045
     Dates: start: 19970301, end: 20010501
  2. STADOL [Suspect]
     Indication: MIGRAINE
     Route: 030
     Dates: start: 19960501
  3. HYDROCODONE BITARTRATE + ACETAMINOPHEN [Concomitant]
  4. METHOCARBAMOL [Concomitant]
  5. CARISOPRODOL [Concomitant]
  6. PROMETHAZINE [Concomitant]
  7. METHYLPREDNISOLONE [Concomitant]
  8. CYCLOBENZAPRINE HCL [Concomitant]
  9. NAPROXEN [Concomitant]

REACTIONS (1)
  - DEPENDENCE [None]
